FAERS Safety Report 7363683-2 (Version None)
Quarter: 2011Q1

REPORT INFORMATION
  Report Type: 
  Country: None (occurrence: None)
  Receive Date: 20110321
  Receipt Date: 20110103
  Transmission Date: 20110831
  Serious: No
  Sender: FDA-Public Use
  Company Number: A0876125A

PATIENT
  Age: 58 Year
  Sex: Male
  Weight: 104.1 kg

DRUGS (16)
  1. KEPPRA [Concomitant]
     Route: 048
  2. ZOCOR [Concomitant]
     Dosage: 10MG AT NIGHT
  3. CORTICOSTEROIDS [Concomitant]
     Indication: IDIOPATHIC THROMBOCYTOPENIC PURPURA
  4. ACETAMINOPHEN [Concomitant]
     Route: 048
  5. PROMACTA [Suspect]
     Indication: IDIOPATHIC THROMBOCYTOPENIC PURPURA
     Route: 048
     Dates: start: 20100723, end: 20100726
  6. HYDRALAZINE HYDROCHLORIDE [Concomitant]
     Dosage: 25MG TWICE PER DAY
     Route: 048
  7. IMMUNE GLOBULIN INTRAVENOUS (HUMAN) [Concomitant]
     Indication: IDIOPATHIC THROMBOCYTOPENIC PURPURA
  8. WELLBUTRIN [Concomitant]
     Dosage: 100MG PER DAY
  9. KLOR-CON [Concomitant]
     Dosage: 10MG TWICE PER DAY
  10. LISINOPRIL [Concomitant]
     Dosage: 10MG PER DAY
  11. NIACIN [Concomitant]
     Dosage: 500MG AT NIGHT
  12. SEVELAMER [Concomitant]
     Route: 048
  13. PRILOSEC [Concomitant]
     Dosage: 40MG PER DAY
  14. LANTUS [Concomitant]
  15. LOPRESSOR [Concomitant]
     Dosage: 25MG TWICE PER DAY
  16. NOVOLOG [Concomitant]

REACTIONS (2)
  - DRY MOUTH [None]
  - STOMATITIS [None]
